FAERS Safety Report 13637250 (Version 5)
Quarter: 2018Q2

REPORT INFORMATION
  Report Type: Report from Study
  Country: JP (occurrence: JP)
  Receive Date: 20170609
  Receipt Date: 20180418
  Transmission Date: 20180711
  Serious: Yes (Life-Threatening, Hospitalization)
  Sender: FDA-Public Use
  Company Number: JP-TEVA-765773ROM

PATIENT
  Age: 26 Year
  Sex: Female
  Weight: 55.3 kg

DRUGS (7)
  1. METHYLPREDNISOLONE INJECTION [Concomitant]
     Active Substance: METHYLPREDNISOLONE SODIUM SUCCINATE
     Dates: start: 20170309, end: 20170312
  2. MECOBALAMIN [Concomitant]
     Active Substance: METHYLCOBALAMIN
  3. GLATIRAMER ACETATE INJECTION [Suspect]
     Active Substance: GLATIRAMER ACETATE
     Indication: MULTIPLE SCLEROSIS
     Dosage: 20 MILLIGRAM/MILLILITERS DAILY;
     Route: 058
     Dates: start: 20170524, end: 20170526
  4. RABEPRAZOLE NA TABLET [Concomitant]
     Dates: end: 20170411
  5. PREDONINE [Concomitant]
     Active Substance: PREDNISOLONE
     Dates: start: 20170105, end: 20170411
  6. GLATIRAMER ACETATE INJECTION [Suspect]
     Active Substance: GLATIRAMER ACETATE
     Indication: RELAPSING-REMITTING MULTIPLE SCLEROSIS
     Dosage: 20 MILLIGRAM DAILY;
     Route: 058
     Dates: start: 20170105, end: 20170425
  7. VALPROATE NA [Concomitant]
     Active Substance: VALPROATE SODIUM

REACTIONS (5)
  - Palpitations [Recovered/Resolved]
  - Rash generalised [Recovered/Resolved]
  - Loss of consciousness [Recovered/Resolved]
  - Nausea [Recovered/Resolved]
  - Anaphylactic shock [Recovered/Resolved]

NARRATIVE: CASE EVENT DATE: 20170424
